FAERS Safety Report 5005061-7 (Version None)
Quarter: 2006Q2

REPORT INFORMATION
  Report Type: 
  Country: None (occurrence: None)
  Receive Date: 20060516
  Receipt Date: 20060516
  Transmission Date: 20061013
  Serious: Yes (Life-Threatening, Hospitalization, Other)
  Sender: FDA-Public Use
  Company Number: None

PATIENT
  Sex: Male

DRUGS (2)
  1. SUFENTA [Suspect]
     Dosage: 50 MCG   ONCE   IV BOLUS
     Route: 040
  2. HYDROMORPHONE HCL [Suspect]
     Dosage: 0.5 MG  X 2   IV BOLUS
     Route: 040

REACTIONS (6)
  - CARDIO-RESPIRATORY ARREST [None]
  - HYPERHIDROSIS [None]
  - LOSS OF CONSCIOUSNESS [None]
  - OXYGEN SATURATION DECREASED [None]
  - SKIN DISCOLOURATION [None]
  - SNORING [None]
